FAERS Safety Report 6300458-7 (Version None)
Quarter: 2009Q3

REPORT INFORMATION
  Report Type: 
  Country: None (occurrence: None)
  Receive Date: 20090806
  Receipt Date: 20090108
  Transmission Date: 20100115
  Serious: No
  Sender: FDA-Public Use
  Company Number: US-ABBOTT-08P-163-0494224-00

PATIENT
  Sex: Female
  Weight: 63.56 kg

DRUGS (4)
  1. DEPAKOTE ER [Suspect]
     Indication: NERVOUS SYSTEM DISORDER
     Route: 048
     Dates: start: 20081204, end: 20081216
  2. DEPAKOTE ER [Suspect]
     Indication: AFFECTIVE DISORDER
  3. DEPAKOTE [Suspect]
     Indication: NERVOUS SYSTEM DISORDER
     Route: 048
     Dates: start: 20081216, end: 20081219
  4. DEPAKOTE [Suspect]
     Indication: AFFECTIVE DISORDER

REACTIONS (6)
  - ACTIVITIES OF DAILY LIVING IMPAIRED [None]
  - CONFUSIONAL STATE [None]
  - DIZZINESS [None]
  - EMOTIONAL DISORDER [None]
  - FLAT AFFECT [None]
  - UNEVALUABLE EVENT [None]
